FAERS Safety Report 7025192-X (Version None)
Quarter: 2010Q4

REPORT INFORMATION
  Report Type: 
  Country: None (occurrence: None)
  Receive Date: 20101001
  Receipt Date: 20100930
  Transmission Date: 20110411
  Serious: Yes (Hospitalization)
  Sender: FDA-Public Use
  Company Number: US-PFIZER INC-2010119936

PATIENT
  Sex: Male
  Weight: 90.703 kg

DRUGS (21)
  1. AMLODIPINE BESYLATE AND ATORVASTATIN CALCIUM [Suspect]
     Indication: HYPERTENSION
     Dosage: 10 MG/20 MG, ONCE DAILY
     Route: 048
     Dates: start: 20090320
  2. ATACAND [Suspect]
     Indication: HYPERTENSION
     Dosage: 32 MG, 1X/DAY
     Route: 048
     Dates: start: 20081206
  3. OMEPRAZOLE [Concomitant]
     Dosage: UNK
     Dates: start: 20070101
  4. LEVOTHYROXINE [Concomitant]
     Dosage: UNK
     Dates: start: 20040101
  5. VALIUM [Concomitant]
     Dosage: UNK
     Dates: start: 19670101
  6. ACETAMINOPHEN [Concomitant]
     Dosage: UNK
     Dates: start: 19670101
  7. HYDROCODONE [Concomitant]
     Dosage: UNK
     Dates: start: 19670101
  8. TRIAMCINOLONE [Concomitant]
     Dosage: UNK
     Dates: start: 20080101
  9. ACETYLSALICYLIC ACID [Concomitant]
     Dosage: UNK
     Dates: start: 20090123
  10. HYDROXYZINE [Concomitant]
     Dosage: UNK
     Dates: start: 20090501
  11. LISINOPRIL [Concomitant]
     Dosage: UNK
     Dates: start: 20090712
  12. LISINOPRIL [Concomitant]
     Dosage: UNK
     Dates: start: 20100824
  13. CLOPIDOGREL [Concomitant]
     Dosage: UNK
     Dates: start: 20090618
  14. METOPROLOL [Concomitant]
     Dosage: UNK
     Dates: start: 20091026
  15. FISH OIL [Concomitant]
     Dosage: UNK
     Dates: start: 19950101
  16. EDECRIN [Concomitant]
     Dosage: UNK
     Dates: start: 20100504
  17. HYDROCHLOROTHIAZIDE [Concomitant]
     Dosage: UNK
     Dates: start: 20100526, end: 20100602
  18. HYDROCHLOROTHIAZIDE [Concomitant]
     Dosage: UNK
     Dates: start: 20100609
  19. FUROSEMIDE [Concomitant]
     Dosage: UNK
     Dates: start: 20100824, end: 20100827
  20. FUROSEMIDE [Concomitant]
     Dosage: UNK
     Dates: start: 20100828
  21. TIZANIDINE [Concomitant]
     Dosage: UNK
     Dates: start: 20090725

REACTIONS (1)
  - TRANSIENT ISCHAEMIC ATTACK [None]
